FAERS Safety Report 18339969 (Version 1)
Quarter: 2020Q4

REPORT INFORMATION
  Report Type: Report from Study
  Country: DE (occurrence: DE)
  Receive Date: 20201002
  Receipt Date: 20201002
  Transmission Date: 20210113
  Serious: Yes (Hospitalization)
  Sender: FDA-Public Use
  Company Number: DE-JNJFOC-20200938626

PATIENT

DRUGS (2)
  1. VELETRI [Suspect]
     Active Substance: EPOPROSTENOL
     Indication: PRODUCT USED FOR UNKNOWN INDICATION
     Dosage: 3.4 NG/KG PER MIN
     Route: 042
     Dates: start: 20200805, end: 20200908
  2. VELETRI [Suspect]
     Active Substance: EPOPROSTENOL
     Dosage: 4.0 NG/KG PER MIN
     Route: 042
     Dates: start: 20200909

REACTIONS (2)
  - Vaginal haemorrhage [Recovering/Resolving]
  - Polyp [Unknown]

NARRATIVE: CASE EVENT DATE: 20200918
